FAERS Safety Report 24047088 (Version 1)
Quarter: 2024Q3

REPORT INFORMATION
  Report Type: Spontaneous
  Country: US (occurrence: None)
  Receive Date: 20240703
  Receipt Date: 20240703
  Transmission Date: 20241017
  Serious: No
  Sender: Public
  Company Number: None

PATIENT
  Sex: Male

DRUGS (10)
  1. POMALYST [Suspect]
     Active Substance: POMALIDOMIDE
     Indication: Plasma cell myeloma
     Dosage: FREQUENCY : AS DIRECTED;?
     Route: 048
     Dates: start: 20240313
  2. ACYCLOVIR [Concomitant]
     Active Substance: ACYCLOVIR
  3. ATENOLOL [Concomitant]
  4. ATORVASTATIN [Concomitant]
  5. DULOXETINE [Concomitant]
  6. EPINEPHRINE [Concomitant]
  7. TERBINAFINE [Concomitant]
  8. TRELEGY ELLIPTA [Concomitant]
     Active Substance: FLUTICASONE FUROATE\UMECLIDINIUM BROMIDE\VILANTEROL TRIFENATATE
  9. VENTOLIN HFA [Concomitant]
     Active Substance: ALBUTEROL SULFATE
  10. VITAMIN D3 [Concomitant]
     Active Substance: CHOLECALCIFEROL

REACTIONS (2)
  - Ear pain [None]
  - Oropharyngeal pain [None]
